FAERS Safety Report 7823952-6 (Version None)
Quarter: 2011Q4

REPORT INFORMATION
  Report Type: 
  Country: None (occurrence: None)
  Receive Date: 20111019
  Receipt Date: 20111011
  Transmission Date: 20120403
  Serious: Yes (Hospitalization)
  Sender: FDA-Public Use
  Company Number: TW-JNJFOC-20111005333

PATIENT
  Sex: Male
  Weight: 54 kg

DRUGS (1)
  1. ULTRACET [Suspect]
     Indication: PRODUCT USED FOR UNKNOWN INDICATION
     Route: 048

REACTIONS (4)
  - FEMUR FRACTURE [None]
  - HUMERUS FRACTURE [None]
  - DIZZINESS [None]
  - FALL [None]
